FAERS Safety Report 9267886 (Version 1)
Quarter: 2013Q2

REPORT INFORMATION
  Report Type: Spontaneous
  Country: US (occurrence: US)
  Receive Date: 20130502
  Receipt Date: 20130502
  Transmission Date: 20140414
  Serious: No
  Sender: FDA-Public Use
  Company Number: US-ALEXION-A201201197

PATIENT
  Age: 43 Year
  Sex: Female
  Weight: 86 kg

DRUGS (5)
  1. SOLIRIS 300MG [Suspect]
     Indication: PAROXYSMAL NOCTURNAL HAEMOGLOBINURIA
     Dosage: 900 MG, Q2W
     Route: 042
     Dates: start: 20110427
  2. FOLIC ACID [Concomitant]
     Dosage: 1 MG, QD
     Route: 048
     Dates: start: 20100824
  3. FEOSOL [Concomitant]
     Dosage: 325 MG, TID
     Route: 048
     Dates: start: 20100824
  4. NIZORAL [Concomitant]
     Dosage: SMALL AMOUNT TO SKIN DAILY X 2-3 WEEKS
     Route: 061
     Dates: start: 20011203
  5. MULTIVITAMIN [Concomitant]
     Dosage: , QDUNK
     Route: 048

REACTIONS (6)
  - Dyspnoea exertional [Unknown]
  - Nasopharyngitis [Unknown]
  - Rhinorrhoea [Unknown]
  - Alopecia [Unknown]
  - Oropharyngeal pain [Recovering/Resolving]
  - Cough [Not Recovered/Not Resolved]
